FAERS Safety Report 16494275 (Version 2)
Quarter: 2019Q4

REPORT INFORMATION
  Report Type: Spontaneous
  Country: IE (occurrence: IE)
  Receive Date: 20190628
  Receipt Date: 20191129
  Transmission Date: 20200122
  Serious: Yes (Death, Hospitalization)
  Sender: FDA-Public Use
  Company Number: PHHY2019IE148976

PATIENT
  Age: 88 Year
  Sex: Male

DRUGS (3)
  1. COLCHICINE (G) [Concomitant]
     Indication: BLOOD URIC ACID INCREASED
     Dosage: 500 UG, Q12H  (TWICE A DAY)
     Route: 065
     Dates: start: 20190423, end: 20190516
  2. ALLOPURINOL. [Suspect]
     Active Substance: ALLOPURINOL
     Indication: GOUT
     Dosage: 10 MG, Q24H
     Route: 048
  3. ALLOPURINOL. [Suspect]
     Active Substance: ALLOPURINOL
     Indication: BLOOD URIC ACID INCREASED

REACTIONS (6)
  - Asthenia [Not Recovered/Not Resolved]
  - Stevens-Johnson syndrome [Fatal]
  - Oropharyngeal pain [Not Recovered/Not Resolved]
  - Mucosal atrophy [Not Recovered/Not Resolved]
  - Blister [Not Recovered/Not Resolved]
  - Decreased appetite [Not Recovered/Not Resolved]

NARRATIVE: CASE EVENT DATE: 201905
